FAERS Safety Report 15781789 (Version 1)
Quarter: 2019Q1

REPORT INFORMATION
  Report Type: Spontaneous
  Country: US (occurrence: US)
  Receive Date: 20190102
  Receipt Date: 20190102
  Transmission Date: 20190417
  Serious: No
  Sender: FDA-Public Use
  Company Number: US-TEVA-2018-US-986105

PATIENT
  Sex: Female

DRUGS (13)
  1. COPAXONE [Suspect]
     Active Substance: GLATIRAMER ACETATE
     Indication: MULTIPLE SCLEROSIS
     Route: 058
     Dates: start: 20180307
  2. CARISOPRODOL. [Concomitant]
     Active Substance: CARISOPRODOL
  3. ALPRAZOLAM. [Concomitant]
     Active Substance: ALPRAZOLAM
  4. TRAZODONE [Concomitant]
     Active Substance: TRAZODONE HYDROCHLORIDE
  5. SUMATRIPTAN. [Concomitant]
     Active Substance: SUMATRIPTAN
  6. NAPROXEN. [Concomitant]
     Active Substance: NAPROXEN
  7. GABAPENTIN. [Concomitant]
     Active Substance: GABAPENTIN
  8. BACLOFEN. [Concomitant]
     Active Substance: BACLOFEN
  9. VYVANSE [Concomitant]
     Active Substance: LISDEXAMFETAMINE DIMESYLATE
  10. METHYLPRED [Concomitant]
     Active Substance: METHYLPREDNISOLONE
  11. TOPIRAMATE. [Concomitant]
     Active Substance: TOPIRAMATE
  12. HYDROCO/APAP [Concomitant]
     Active Substance: ACETAMINOPHEN\HYDROCODONE
  13. CYCLOBENZAPAR [Concomitant]

REACTIONS (1)
  - Injection site swelling [Not Recovered/Not Resolved]
